FAERS Safety Report 18664573 (Version 4)
Quarter: 2021Q2

REPORT INFORMATION
  Report Type: Spontaneous
  Country: GB (occurrence: GB)
  Receive Date: 20201225
  Receipt Date: 20210625
  Transmission Date: 20210717
  Serious: Yes (Other)
  Sender: FDA-Public Use
  Company Number: GB-BIOVITRUM-2020GB7886

PATIENT
  Age: 17 Year
  Sex: Male

DRUGS (5)
  1. OMEGA 3 [Concomitant]
     Active Substance: OMEGA-3 FATTY ACIDS
     Dates: start: 2020
  2. ORFADIN [Suspect]
     Active Substance: NITISINONE
     Indication: ALKAPTONURIA
     Dates: start: 2018
  3. MULTIVITAMINS [Concomitant]
     Active Substance: VITAMINS
     Dates: start: 2019
  4. MULTIVITAMINS [Concomitant]
     Active Substance: VITAMINS
     Dates: start: 2020
  5. OMEGA 3 [Concomitant]
     Active Substance: OMEGA-3 FATTY ACIDS
     Dates: start: 2019

REACTIONS (3)
  - Lenticular opacities [Not Recovered/Not Resolved]
  - Amino acid level increased [Not Recovered/Not Resolved]
  - Cataract [Not Recovered/Not Resolved]

NARRATIVE: CASE EVENT DATE: 2018
